FAERS Safety Report 6470348-8 (Version None)
Quarter: 2009Q4

REPORT INFORMATION
  Report Type: 
  Country: None (occurrence: None)
  Receive Date: 20091203
  Receipt Date: 20091123
  Transmission Date: 20100525
  Serious: Yes (Disabling)
  Sender: FDA-Public Use
  Company Number: GXKR2009DK12858

PATIENT
  Sex: Female

DRUGS (1)
  1. SERTRALINE HCL [Suspect]
     Indication: DEPRESSION
     Dosage: UNK
     Route: 048
     Dates: start: 20080301

REACTIONS (5)
  - COLOUR BLINDNESS ACQUIRED [None]
  - PAPILLOEDEMA [None]
  - PUPILLARY DISORDER [None]
  - VISUAL FIELD DEFECT [None]
  - VISUAL IMPAIRMENT [None]
